FAERS Safety Report 18521894 (Version 3)
Quarter: 2021Q4

REPORT INFORMATION
  Report Type: Spontaneous
  Country: US (occurrence: US)
  Receive Date: 20201119
  Receipt Date: 20211104
  Transmission Date: 20220303
  Serious: Yes (Other)
  Sender: FDA-Public Use
  Company Number: US-PFIZER INC-2020453090

PATIENT
  Age: 68 Year
  Sex: Male

DRUGS (1)
  1. VANCOMYCIN HYDROCHLORIDE [Suspect]
     Active Substance: VANCOMYCIN HYDROCHLORIDE
     Indication: Bacterial infection
     Dosage: UNK

REACTIONS (2)
  - Renal tubular necrosis [Not Recovered/Not Resolved]
  - Nephropathy [Not Recovered/Not Resolved]
